FAERS Safety Report 6235899-X (Version None)
Quarter: 2009Q2

REPORT INFORMATION
  Report Type: 
  Country: None (occurrence: None)
  Receive Date: 20090617
  Receipt Date: 20090617
  Transmission Date: 20091009
  Serious: Yes (Other)
  Sender: FDA-Public Use
  Company Number: None

PATIENT
  Age: 57 Year
  Sex: Female
  Weight: 65.318 kg

DRUGS (3)
  1. TOPIRAMATE [Suspect]
     Indication: BRAIN INJURY
     Dosage: 25MG 2 TIMES A DAY PO
     Route: 048
     Dates: start: 20090425, end: 20090612
  2. TOPIRAMATE [Suspect]
     Indication: MIGRAINE
     Dosage: 25MG 2 TIMES A DAY PO
     Route: 048
     Dates: start: 20090425, end: 20090612
  3. TOPIRAMATE [Suspect]
     Indication: NERVE INJURY
     Dosage: 25MG 2 TIMES A DAY PO
     Route: 048
     Dates: start: 20090425, end: 20090612

REACTIONS (9)
  - ANXIETY [None]
  - AURA [None]
  - DISTURBANCE IN ATTENTION [None]
  - FATIGUE [None]
  - HEADACHE [None]
  - MOTOR DYSFUNCTION [None]
  - PRODUCT SUBSTITUTION ISSUE [None]
  - TREMOR [None]
  - VISUAL BRIGHTNESS [None]
